FAERS Safety Report 6333849-9 (Version None)
Quarter: 2009Q3

REPORT INFORMATION
  Report Type: 
  Country: None (occurrence: None)
  Receive Date: 20090829
  Receipt Date: 20090616
  Transmission Date: 20100115
  Serious: No
  Sender: FDA-Public Use
  Company Number: US-ABBOTT-09P-163-0580304-00

PATIENT
  Sex: Male
  Weight: 110.78 kg

DRUGS (3)
  1. SIMCOR [Suspect]
     Indication: BLOOD CHOLESTEROL ABNORMAL
     Dosage: 50/20 MG TAKEN EVERY NIGHT
     Dates: start: 20090609, end: 20090612
  2. SIMCOR [Suspect]
     Indication: BLOOD TRIGLYCERIDES ABNORMAL
  3. MULTI-VITAMIN [Concomitant]
     Indication: DRUG USE FOR UNKNOWN INDICATION
     Dosage: DAILY
     Route: 048

REACTIONS (2)
  - MYALGIA [None]
  - URINE ODOUR ABNORMAL [None]
